FAERS Safety Report 9130955 (Version 1)
Quarter: 2013Q1

REPORT INFORMATION
  Report Type: Spontaneous
  Country: US (occurrence: US)
  Receive Date: 20130301
  Receipt Date: 20130301
  Transmission Date: 20140127
  Serious: Yes (Other)
  Sender: FDA-Public Use
  Company Number: US-JNJFOC-20130211538

PATIENT
  Sex: 0

DRUGS (5)
  1. DOXORUBICIN [Suspect]
     Indication: RENAL NEOPLASM
     Route: 042
  2. DACTINOMYCIN [Suspect]
     Indication: RENAL NEOPLASM
     Route: 065
  3. VINCRISTINE [Suspect]
     Indication: RENAL NEOPLASM
     Route: 065
  4. CYCLOPHOSPHAMIDE [Suspect]
     Indication: RENAL NEOPLASM
     Route: 065
  5. RADIOTHERAPY [Suspect]
     Indication: RENAL NEOPLASM
     Route: 065

REACTIONS (2)
  - Venoocclusive liver disease [Unknown]
  - Off label use [Unknown]
